FAERS Safety Report 23855951 (Version 1)
Quarter: 2024Q2

REPORT INFORMATION
  Report Type: Spontaneous
  Country: RU (occurrence: RU)
  Receive Date: 20240515
  Receipt Date: 20240515
  Transmission Date: 20240716
  Serious: Yes (Other)
  Sender: FDA-Public Use
  Company Number: RU-Gedeon Richter Plc.-2024_GR_004661

PATIENT
  Age: 28 Year
  Sex: Female

DRUGS (2)
  1. CARIPRAZINE [Suspect]
     Active Substance: CARIPRAZINE
     Indication: Thinking abnormal
     Dosage: 4.5 MG IN THE MORNING.
     Route: 048
     Dates: start: 20240408
  2. CARIPRAZINE [Suspect]
     Active Substance: CARIPRAZINE
     Indication: Thinking abnormal
     Dosage: 1.5 MG TWICE A DAY
     Route: 048
     Dates: start: 20240327, end: 20240408

REACTIONS (2)
  - Drooling [Recovering/Resolving]
  - Musculoskeletal stiffness [Recovering/Resolving]

NARRATIVE: CASE EVENT DATE: 20240419
